FAERS Safety Report 9919899 (Version 2)
Quarter: 2014Q1

REPORT INFORMATION
  Report Type: Report from Study
  Country: US (occurrence: US)
  Receive Date: 20140224
  Receipt Date: 20140310
  Transmission Date: 20141002
  Serious: No
  Sender: FDA-Public Use
  Company Number: US-GILEAD-2014-0094726

PATIENT
  Age: 42 Year
  Sex: Female

DRUGS (3)
  1. SOFOSBUVIR [Suspect]
     Indication: HEPATITIS C
     Dosage: 400 MG, QD
     Route: 065
     Dates: start: 20140214
  2. RIBAVIRIN [Concomitant]
  3. PEGINTERFERON [Concomitant]

REACTIONS (4)
  - Influenza like illness [Recovered/Resolved]
  - Pyrexia [Recovered/Resolved]
  - Chills [Recovered/Resolved]
  - Headache [Unknown]
